FAERS Safety Report 4330661-7 (Version None)
Quarter: 2004Q2

REPORT INFORMATION
  Report Type: 
  Country: None (occurrence: None)
  Receive Date: 20040402
  Receipt Date: 20040322
  Transmission Date: 20050107
  Serious: Yes (Hospitalization)
  Sender: FDA-Public Use
  Company Number: FR-GLAXOSMITHKLINE-B0327444A

PATIENT
  Age: 10 Year
  Sex: Female
  Weight: 18 kg

DRUGS (8)
  1. BECOTIDE [Suspect]
     Indication: ASTHMA
     Dosage: 4PUFF PER DAY
     Route: 055
     Dates: start: 20030102, end: 20030910
  2. BECOTIDE [Suspect]
     Indication: HYPERSENSITIVITY
     Dosage: 4PUFF PER DAY
     Route: 055
     Dates: start: 20030102, end: 20030910
  3. SERETIDE [Suspect]
     Indication: ASTHMA
     Dosage: 4PUFF PER DAY
     Route: 055
     Dates: start: 20030911, end: 20030915
  4. SERETIDE [Suspect]
     Indication: HYPERSENSITIVITY
     Dosage: 4PUFF PER DAY
     Route: 055
     Dates: start: 20030911, end: 20030915
  5. HYDROCORTISONE [Suspect]
     Route: 048
     Dates: end: 20031117
  6. RETROVIR [Concomitant]
     Indication: ACQUIRED IMMUNODEFICIENCY SYNDROME
     Dates: start: 20030301
  7. ZIAGEN [Concomitant]
     Indication: ACQUIRED IMMUNODEFICIENCY SYNDROME
     Dates: start: 20030301
  8. KALETRA [Concomitant]
     Indication: ACQUIRED IMMUNODEFICIENCY SYNDROME
     Dates: start: 20030301

REACTIONS (8)
  - ACNE [None]
  - BLOOD CORTISOL DECREASED [None]
  - CUSHING'S SYNDROME [None]
  - FACE OEDEMA [None]
  - HIRSUTISM [None]
  - HYPERTENSION [None]
  - OBESITY [None]
  - WEIGHT INCREASED [None]
